FAERS Safety Report 14818576 (Version 2)
Quarter: 2019Q2

REPORT INFORMATION
  Report Type: Report from Study
  Country: GB (occurrence: GB)
  Receive Date: 20180427
  Receipt Date: 20190524
  Transmission Date: 20190711
  Serious: Yes (Hospitalization, Other)
  Sender: FDA-Public Use
  Company Number: GB-TEVA-2018-GB-884239

PATIENT
  Age: 40 Year
  Sex: Female

DRUGS (1)
  1. COPAXONE [Suspect]
     Active Substance: GLATIRAMER ACETATE
     Indication: MULTIPLE SCLEROSIS
     Route: 058
     Dates: start: 20180109, end: 20190202

REACTIONS (12)
  - Dizziness [Recovering/Resolving]
  - Burning sensation [Recovering/Resolving]
  - Dizziness [Recovering/Resolving]
  - Nausea [Recovering/Resolving]
  - Body temperature increased [Recovering/Resolving]
  - Palpitations [Recovering/Resolving]
  - Immediate post-injection reaction [Recovering/Resolving]
  - Chest pain [Recovering/Resolving]
  - Muscle tightness [Recovering/Resolving]
  - Hyperhidrosis [Recovering/Resolving]
  - Injection site reaction [Unknown]
  - Feeling abnormal [Unknown]

NARRATIVE: CASE EVENT DATE: 20180416
